FAERS Safety Report 5331312-5 (Version None)
Quarter: 2007Q2

REPORT INFORMATION
  Report Type: 
  Country: None (occurrence: None)
  Receive Date: 20070522
  Receipt Date: 20070510
  Transmission Date: 20071010
  Serious: Yes (Hospitalization)
  Sender: FDA-Public Use
  Company Number: HQWYE118410MAY07

PATIENT
  Age: 57 Year
  Sex: Female

DRUGS (4)
  1. PANTOPRAZOLE SODIUM [Suspect]
     Dosage: ^DF^
     Route: 048
     Dates: start: 20070216, end: 20070219
  2. MUCO-MEPHA [Concomitant]
     Route: 048
     Dates: start: 20070216, end: 20070101
  3. SIBROVITA [Suspect]
     Indication: ACUTE SINUSITIS
     Route: 048
     Dates: start: 20070216, end: 20070220
  4. RESYL PLUS [Concomitant]
     Dosage: ^DF^
     Route: 048
     Dates: start: 20070216, end: 20070101

REACTIONS (9)
  - AUTOIMMUNE HEPATITIS [None]
  - DYSPEPSIA [None]
  - FAECES DISCOLOURED [None]
  - HEPATIC NECROSIS [None]
  - HEPATOCELLULAR DAMAGE [None]
  - JAUNDICE HEPATOCELLULAR [None]
  - NAUSEA [None]
  - URINE ANALYSIS ABNORMAL [None]
  - VOMITING [None]
